FAERS Safety Report 4445028-0 (Version None)
Quarter: 2004Q3

REPORT INFORMATION
  Report Type: 
  Country: None (occurrence: None)
  Receive Date: 20040908
  Receipt Date: 20040908
  Transmission Date: 20050211
  Serious: Yes (Hospitalization)
  Sender: FDA-Public Use
  Company Number: None

PATIENT
  Age: 52 Year
  Sex: Male
  Weight: 91 kg

DRUGS (4)
  1. IBUPROFEN [Suspect]
     Indication: BACK PAIN
     Dosage: 2-3 TABS TID
  2. VIOXX [Suspect]
     Dosage: 25 MG DAILY
  3. LISINOPRIL 20 MG DAILY [Suspect]
  4. SEVERAL [Concomitant]

REACTIONS (9)
  - FEELING ABNORMAL [None]
  - HYPERHIDROSIS [None]
  - HYPERKALAEMIA [None]
  - HYPOTENSION [None]
  - METABOLIC ACIDOSIS [None]
  - NAUSEA [None]
  - OXYGEN SATURATION DECREASED [None]
  - RENAL FAILURE ACUTE [None]
  - VOMITING [None]
